FAERS Safety Report 18513574 (Version 1)
Quarter: 2020Q4

REPORT INFORMATION
  Report Type: Spontaneous
  Country: US (occurrence: US)
  Receive Date: 20201117
  Receipt Date: 20201117
  Transmission Date: 20210114
  Serious: Yes (Death, Life-Threatening, Hospitalization)
  Sender: FDA-Public Use
  Company Number: US-009507513-2011USA008140

PATIENT
  Age: 29443 Day
  Sex: Female
  Weight: 53.2 kg

DRUGS (40)
  1. PRINIVIL [Suspect]
     Active Substance: LISINOPRIL
     Dosage: 40 MILLIGRAM, QD
     Route: 048
     Dates: start: 20140625, end: 20140707
  2. CLOPIDOGREL [Suspect]
     Active Substance: CLOPIDOGREL BISULFATE
     Indication: PERIPHERAL ARTERIAL OCCLUSIVE DISEASE
     Dosage: 75 MILLIGRAM, QD
     Route: 048
     Dates: start: 20130510, end: 20140625
  3. FUROSEMIDE. [Concomitant]
     Active Substance: FUROSEMIDE
     Indication: POLYURIA
     Dosage: 20 MILLIGRAM, QD
     Route: 042
     Dates: start: 20140714, end: 20140714
  4. AMIODARONE [Concomitant]
     Active Substance: AMIODARONE
     Indication: ATRIAL FIBRILLATION
     Dosage: 900 MILLIGRAM, QD
     Route: 042
     Dates: start: 20140708, end: 20140710
  5. POTASSIUM CHLORIDE. [Concomitant]
     Active Substance: POTASSIUM CHLORIDE
     Indication: MINERAL SUPPLEMENTATION
     Dosage: 20 MILLIEQUIVALENT, QD
     Route: 042
     Dates: start: 20140705, end: 20140705
  6. IRON SUCROSE [Concomitant]
     Active Substance: IRON SUCROSE
     Indication: IRON DEFICIENCY
     Dosage: 400 MILLIGRAM, QD
     Route: 042
     Dates: start: 20140712, end: 20140712
  7. SODIUM CHLORIDE. [Concomitant]
     Active Substance: SODIUM CHLORIDE
     Indication: HYPONATRAEMIA
     Dosage: 1 GRAM, QD
     Route: 048
     Dates: start: 20140627, end: 20140627
  8. AMLODIPINE [Concomitant]
     Active Substance: AMLODIPINE BESYLATE
     Indication: HYPERTENSION
     Dosage: 5 MILLIGRAM, QD
     Route: 048
     Dates: start: 20130909, end: 20140702
  9. LEVOFLOXACIN. [Concomitant]
     Active Substance: LEVOFLOXACIN
     Indication: SEPSIS
     Dosage: 250 MILLIGRAM, QD
     Route: 042
     Dates: start: 20140702, end: 20140706
  10. PROMETHAZINE [Concomitant]
     Active Substance: PROMETHAZINE HYDROCHLORIDE
     Indication: NAUSEA
     Dosage: 6.25 MILLIGRAM, QD
     Route: 042
     Dates: start: 20140627, end: 20140713
  11. PANTOPRAZOLE [Concomitant]
     Active Substance: PANTOPRAZOLE
     Indication: ASPIRATION
     Dosage: 40 MILLIGRAM, QD
     Route: 042
     Dates: start: 20140703
  12. INSULIN ASPART [Concomitant]
     Active Substance: INSULIN ASPART
     Indication: HYPERGLYCAEMIA
     Dosage: 8 INTERNATIONAL UNIT, QD
     Route: 058
     Dates: start: 20140708, end: 20140716
  13. ASPIRIN. [Concomitant]
     Active Substance: ASPIRIN
     Indication: CARDIOVASCULAR EVENT PROPHYLAXIS
     Route: 048
     Dates: start: 20140629, end: 20140702
  14. METOPROLOL. [Concomitant]
     Active Substance: METOPROLOL
     Dosage: 50 MILLIGRAM, QD
     Route: 042
     Dates: start: 20130912, end: 20140630
  15. FENTANYL. [Concomitant]
     Active Substance: FENTANYL
     Dosage: 25 MICROGRAM, QD
     Route: 042
     Dates: start: 20140702, end: 20140702
  16. ACETAMINOPHEN. [Concomitant]
     Active Substance: ACETAMINOPHEN
     Indication: PROCEDURAL PAIN
     Dosage: 650 MILLIGRAM, QD
     Route: 048
     Dates: start: 20140701
  17. ATROPINE. [Concomitant]
     Active Substance: ATROPINE
     Indication: MACULAR DEGENERATION
     Dosage: 4 GTT DROPS, QD
     Dates: start: 20140625, end: 20140716
  18. HEPARIN [Concomitant]
     Active Substance: HEPARIN SODIUM
     Indication: THROMBOSIS PROPHYLAXIS
     Dosage: 1 DOSAGE FORM, QD
     Route: 058
     Dates: start: 20140625, end: 20140708
  19. DEMECLOCYCLINE [Concomitant]
     Active Substance: DEMECLOCYCLINE
     Indication: HYPONATRAEMIA
     Dosage: 75 MILLIGRAM, QD
     Route: 048
     Dates: start: 20140626, end: 20140702
  20. ONDANSETRON [Concomitant]
     Active Substance: ONDANSETRON
     Indication: ASPIRATION
     Dosage: 16 MILLIGRAM, QD
     Route: 042
     Dates: start: 20140625, end: 20140708
  21. DILTIAZEM. [Concomitant]
     Active Substance: DILTIAZEM
     Dosage: 10 MILLIGRAM, QD
     Route: 042
     Dates: start: 20140705, end: 20140706
  22. AMIODARONE [Concomitant]
     Active Substance: AMIODARONE
     Dosage: 150 MILLIGRAM, QD
     Route: 042
     Dates: start: 20140708, end: 20140708
  23. NICOTINE. [Concomitant]
     Active Substance: NICOTINE
     Indication: NICOTINE DEPENDENCE
     Dosage: 14 MILLIGRAM, QD
     Route: 062
     Dates: start: 20140627, end: 20140716
  24. ESCITALOPRAM [Concomitant]
     Active Substance: ESCITALOPRAM OXALATE
     Indication: DEPRESSION
     Dosage: 10 MILLIGRAM, QD
     Route: 048
     Dates: start: 20140625, end: 20140702
  25. DOCUSATE SODIUM. [Concomitant]
     Active Substance: DOCUSATE SODIUM
     Indication: CONSTIPATION
     Dosage: 200 MILLIGRAM, QD
     Route: 048
     Dates: start: 20140701, end: 20140702
  26. ATORVASTATIN [Concomitant]
     Active Substance: ATORVASTATIN
     Indication: HYPERLIPIDAEMIA
     Dosage: 20 MILLIGRAM, QD
     Route: 048
     Dates: start: 20140625, end: 20140702
  27. POTASSIUM CHLORIDE. [Concomitant]
     Active Substance: POTASSIUM CHLORIDE
     Dosage: 40 MILLIEQUIVALENT, QD
     Route: 042
     Dates: start: 20140627, end: 20140705
  28. LORAZEPAM. [Concomitant]
     Active Substance: LORAZEPAM
     Indication: ANXIETY
     Dosage: 0.5 MILLIGRAM, QD
     Route: 042
     Dates: start: 20140712, end: 20140713
  29. HYDRALAZINE [Concomitant]
     Active Substance: HYDRALAZINE HYDROCHLORIDE
     Indication: HYPERTENSION
     Dosage: 75 MILLIGRAM, QD
     Route: 048
     Dates: start: 20140625, end: 20140701
  30. PREDNISOLONE. [Concomitant]
     Active Substance: PREDNISOLONE
     Indication: EYE INFLAMMATION
     Dosage: 6 GTT DROPS, QD
     Route: 047
     Dates: start: 20140628, end: 20140716
  31. METOPROLOL. [Concomitant]
     Active Substance: METOPROLOL
     Dosage: 50 MILLIGRAM, QD
     Route: 042
     Dates: start: 20140630, end: 20140705
  32. FENTANYL. [Concomitant]
     Active Substance: FENTANYL
     Indication: PROCEDURAL PAIN
     Dosage: 50 MICROGRAM, QD
     Route: 042
     Dates: start: 20140702, end: 20140708
  33. ACETAZOLAMIDE. [Concomitant]
     Active Substance: ACETAZOLAMIDE
     Dosage: 1125 MILLIGRAM, QD
     Route: 042
     Dates: start: 20140714, end: 20140714
  34. METHOCARBAMOL. [Concomitant]
     Active Substance: METHOCARBAMOL
     Indication: MUSCLE SPASMS
     Dosage: 2000 MILLIGRAM, QD
     Route: 042
     Dates: start: 20140708, end: 20140716
  35. MAGNESIUM SULFATE. [Concomitant]
     Active Substance: MAGNESIUM SULFATE
     Indication: HYPOMAGNESAEMIA
     Dosage: 4 GRAM, QD
     Route: 042
     Dates: start: 20140706, end: 20140706
  36. METOPROLOL. [Concomitant]
     Active Substance: METOPROLOL
     Indication: HYPERTENSION
     Dosage: 10 MILLIGRAM, QD
     Route: 042
     Dates: start: 20140716, end: 20140716
  37. ACETAZOLAMIDE. [Concomitant]
     Active Substance: ACETAZOLAMIDE
     Indication: RENAL FAILURE
     Dosage: 500 MILLIGRAM, QD
     Route: 042
     Dates: start: 20140714, end: 20140714
  38. DILTIAZEM. [Concomitant]
     Active Substance: DILTIAZEM
     Indication: HYPERTENSION
     Route: 042
     Dates: start: 20140707, end: 20140710
  39. BISACODYL. [Concomitant]
     Active Substance: BISACODYL
     Indication: CONSTIPATION
     Dosage: 10 MILLIGRAM, QD
     Route: 048
     Dates: start: 20140701, end: 20140701
  40. PHENYLEPHRINE [Concomitant]
     Active Substance: PHENYLEPHRINE HYDROCHLORIDE
     Indication: SHOCK
     Dosage: 80 MILLIGRAM, QD
     Route: 042
     Dates: start: 20140702, end: 20140708

REACTIONS (5)
  - Respiratory failure [Fatal]
  - Septic shock [Recovered/Resolved]
  - Ileus [Not Recovered/Not Resolved]
  - Hyponatraemia [Recovered/Resolved]
  - Colitis ischaemic [Recovered/Resolved]

NARRATIVE: CASE EVENT DATE: 20140625
